FAERS Safety Report 12328762 (Version 1)
Quarter: 2016Q2

REPORT INFORMATION
  Report Type: Spontaneous
  Country: US (occurrence: US)
  Receive Date: 20160503
  Receipt Date: 20160503
  Transmission Date: 20160815
  Serious: No
  Sender: FDA-Public Use
  Company Number: US-BEH-2015050618

PATIENT
  Sex: Female
  Weight: 91 kg

DRUGS (17)
  1. LMX [Concomitant]
     Active Substance: LIDOCAINE
     Dosage: AS DIRECTED
     Route: 061
  2. SEROQUEL [Concomitant]
     Active Substance: QUETIAPINE FUMARATE
     Dosage: BEDTIME
     Route: 048
  3. PRILOSEC [Concomitant]
     Active Substance: OMEPRAZOLE MAGNESIUM
     Dosage: BEDTIME
  4. HIZENTRA [Suspect]
     Active Substance: HUMAN IMMUNOGLOBULIN G
     Indication: IMMUNODEFICIENCY COMMON VARIABLE
     Dosage: 4 GM 20 ML VIAL
     Route: 058
  5. AMPICLOX [Concomitant]
     Dosage: AS DIRECTED
     Route: 048
  6. ALBUTEROL. [Concomitant]
     Active Substance: ALBUTEROL
     Dosage: 3 ML EVERY 4-6 HOURS
     Route: 055
  7. VITAMIN D [Concomitant]
     Active Substance: CHOLECALCIFEROL
     Dosage: 50,000 UNITS WEEKLY
     Route: 048
  8. LIDOCAINE PRILOCAINE [Concomitant]
     Dosage: AS DIRECTED
     Route: 061
  9. EPIPEN [Concomitant]
     Active Substance: EPINEPHRINE
     Route: 030
  10. NASACORT [Concomitant]
     Active Substance: TRIAMCINOLONE ACETONIDE
     Dosage: 1 SPRAY DAILY
     Route: 045
  11. ATIVAN [Concomitant]
     Active Substance: LORAZEPAM
     Route: 048
  12. LIPITOR [Concomitant]
     Active Substance: ATORVASTATIN CALCIUM
     Route: 048
  13. LYRICA [Concomitant]
     Active Substance: PREGABALIN
     Route: 048
  14. AMBIEN [Concomitant]
     Active Substance: ZOLPIDEM TARTRATE
     Dosage: BEDTIME
     Route: 048
  15. DIPHENHYDRAMINE. [Concomitant]
     Active Substance: DIPHENHYDRAMINE
     Dosage: AS DIRECTED
     Route: 048
  16. CYMBALTA [Concomitant]
     Active Substance: DULOXETINE HYDROCHLORIDE
     Route: 048
  17. VITAMIN C [Concomitant]
     Active Substance: ASCORBIC ACID
     Route: 048

REACTIONS (3)
  - Administration site inflammation [Unknown]
  - Administration site bruise [Unknown]
  - Administration site nodule [Unknown]
